FAERS Safety Report 17986446 (Version 1)
Quarter: 2020Q3

REPORT INFORMATION
  Report Type: Spontaneous
  Country: JP (occurrence: JP)
  Receive Date: 20200706
  Receipt Date: 20200706
  Transmission Date: 20201103
  Serious: Yes (Death)
  Sender: FDA-Public Use
  Company Number: JP-JNJFOC-20200600635

PATIENT
  Sex: Female

DRUGS (3)
  1. XEPLION [Suspect]
     Active Substance: PALIPERIDONE PALMITATE
     Indication: PRODUCT USED FOR UNKNOWN INDICATION
     Dosage: SHOULDER
     Route: 030
     Dates: start: 20200518
  2. XEPLION [Suspect]
     Active Substance: PALIPERIDONE PALMITATE
  3. XEPLION [Suspect]
     Active Substance: PALIPERIDONE PALMITATE

REACTIONS (6)
  - Decreased appetite [Unknown]
  - Neurosis [Unknown]
  - Malaise [Unknown]
  - Limb discomfort [Unknown]
  - Asthenia [Unknown]
  - Completed suicide [Fatal]

NARRATIVE: CASE EVENT DATE: 2020
